FAERS Safety Report 15153851 (Version 1)
Quarter: 2018Q3

REPORT INFORMATION
  Report Type: Spontaneous
  Country: US (occurrence: US)
  Receive Date: 20180717
  Receipt Date: 20180717
  Transmission Date: 20181010
  Serious: No
  Sender: FDA-Public Use
  Company Number: US-MYLANLABS-2018M1048031

PATIENT
  Sex: Male

DRUGS (4)
  1. FENTANYL. [Suspect]
     Active Substance: FENTANYL
     Indication: PAIN
  2. FENTANYL. [Suspect]
     Active Substance: FENTANYL
     Indication: INTERVERTEBRAL DISC DEGENERATION
     Route: 062
  3. FENTANYL. [Suspect]
     Active Substance: FENTANYL
     Indication: SPINAL OSTEOARTHRITIS
  4. FENTANYL. [Suspect]
     Active Substance: FENTANYL
     Indication: NERVE COMPRESSION

REACTIONS (3)
  - Wrong technique in product usage process [Unknown]
  - No adverse event [Unknown]
  - Product adhesion issue [Recovered/Resolved]
